FAERS Safety Report 9297072 (Version 1)
Quarter: 2013Q2

REPORT INFORMATION
  Report Type: Spontaneous
  Country: US (occurrence: US)
  Receive Date: 20130519
  Receipt Date: 20130519
  Transmission Date: 20140414
  Serious: No
  Sender: FDA-Public Use
  Company Number: US-ALLERGAN-1304142US

PATIENT
  Age: 50 Year
  Sex: Female

DRUGS (4)
  1. LASTACAFT [Suspect]
     Indication: GIANT PAPILLARY CONJUNCTIVITIS
     Dosage: 2 GTT, SINGLE
     Route: 047
     Dates: start: 20130320, end: 20130320
  2. LASTACAFT [Suspect]
     Indication: HYPERSENSITIVITY
     Dosage: UNK
     Route: 047
     Dates: start: 201202
  3. UNSPECIFIED EYE PRODUCT [Suspect]
     Indication: PRODUCT USED FOR UNKNOWN INDICATION
     Dosage: UNK
     Route: 047
     Dates: start: 2012
  4. BLOOD PRESSURE MEDICATION [Concomitant]
     Indication: HYPERTENSION
     Dosage: UNK, QD
     Route: 048
     Dates: start: 201210

REACTIONS (4)
  - Scleritis [Unknown]
  - Ocular hyperaemia [Unknown]
  - Eye pain [Unknown]
  - Scleral hyperaemia [Unknown]
